FAERS Safety Report 12197058 (Version 1)
Quarter: 2016Q1

REPORT INFORMATION
  Report Type: Report from Study
  Country: US (occurrence: US)
  Receive Date: 20160321
  Receipt Date: 20160321
  Transmission Date: 20160526
  Serious: Yes (Other)
  Sender: FDA-Public Use
  Company Number: US-BAXTER-2016BAX013662

PATIENT
  Age: 34 Year
  Sex: Male

DRUGS (15)
  1. METHYLPREDNISOLONE. [Concomitant]
     Active Substance: METHYLPREDNISOLONE
     Indication: ADULT T-CELL LYMPHOMA/LEUKAEMIA
     Route: 065
  2. CAMPATH [Concomitant]
     Active Substance: ALEMTUZUMAB
     Indication: ADULT T-CELL LYMPHOMA/LEUKAEMIA
     Route: 065
  3. GEMCITABINE [Concomitant]
     Active Substance: GEMCITABINE\GEMCITABINE HYDROCHLORIDE
     Indication: ADULT T-CELL LYMPHOMA/LEUKAEMIA
     Route: 065
  4. CYCLOPHOSPHAMIDE FOR INJECTION, USP [Suspect]
     Active Substance: CYCLOPHOSPHAMIDE
     Indication: ADULT T-CELL LYMPHOMA/LEUKAEMIA
     Dosage: DAY 1,2,3
     Route: 042
  5. FLUDARABINE [Suspect]
     Active Substance: FLUDARABINE PHOSPHATE
     Indication: ADULT T-CELL LYMPHOMA/LEUKAEMIA
     Dosage: DAY 1,2,3
     Route: 042
  6. DEXTROSE. [Concomitant]
     Active Substance: DEXTROSE
     Route: 065
  7. SALINE [Concomitant]
     Route: 065
  8. DEXTROSE. [Concomitant]
     Active Substance: DEXTROSE
     Route: 065
  9. SALINE [Concomitant]
     Indication: DEHYDRATION
     Route: 065
  10. CISPLATIN. [Concomitant]
     Active Substance: CISPLATIN
     Indication: ADULT T-CELL LYMPHOMA/LEUKAEMIA
     Route: 065
  11. ETOPOSIDE. [Concomitant]
     Active Substance: ETOPOSIDE
     Indication: ADULT T-CELL LYMPHOMA/LEUKAEMIA
     Route: 065
  12. SALINE [Concomitant]
     Route: 065
  13. PRALATREXATE [Concomitant]
     Active Substance: PRALATREXATE
     Indication: ADULT T-CELL LYMPHOMA/LEUKAEMIA
     Route: 065
  14. DEXTROSE. [Concomitant]
     Active Substance: DEXTROSE
     Indication: DEHYDRATION
     Route: 065
  15. CYTARABINE. [Concomitant]
     Active Substance: CYTARABINE
     Indication: ADULT T-CELL LYMPHOMA/LEUKAEMIA
     Route: 065

REACTIONS (2)
  - Disease progression [Unknown]
  - No therapeutic response [Unknown]
